FAERS Safety Report 21430160 (Version 1)
Quarter: 2022Q4

REPORT INFORMATION
  Report Type: Spontaneous
  Country: CH (occurrence: CH)
  Receive Date: 20221009
  Receipt Date: 20221009
  Transmission Date: 20230113
  Serious: Yes (Other)
  Sender: FDA-Public Use
  Company Number: CH-TEVA-2022-CH-2080978

PATIENT
  Age: 66 Year

DRUGS (4)
  1. LEUCOVORIN [Suspect]
     Active Substance: LEUCOVORIN
     Indication: Metastatic gastric cancer
     Route: 065
     Dates: start: 202206
  2. FLUOROURACIL [Suspect]
     Active Substance: FLUOROURACIL
     Indication: Metastatic gastric cancer
     Route: 065
     Dates: start: 202206
  3. OXALIPLATIN [Suspect]
     Active Substance: OXALIPLATIN
     Indication: Metastatic gastric cancer
     Route: 065
     Dates: start: 202206
  4. HERCEPTIN [Suspect]
     Active Substance: TRASTUZUMAB
     Indication: Metastatic gastric cancer
     Route: 065
     Dates: start: 202206

REACTIONS (1)
  - Metastatic gastric cancer [Unknown]

NARRATIVE: CASE EVENT DATE: 20220101
